FAERS Safety Report 9457414 (Version 1)
Quarter: 2013Q3

REPORT INFORMATION
  Report Type: Spontaneous
  Country: GB (occurrence: None)
  Receive Date: 20130812
  Receipt Date: 20130812
  Transmission Date: 20140515
  Serious: Yes (Hospitalization)
  Sender: FDA-Public Use
  Company Number: 2013GMK006434

PATIENT
  Age: 56 Year
  Sex: Male

DRUGS (1)
  1. PRAMIPEXOLE [Suspect]
     Indication: PARKINSON^S DISEASE
     Route: 048

REACTIONS (4)
  - Personality change [None]
  - Obsessive-compulsive personality disorder [None]
  - Impulsive behaviour [None]
  - Impulse-control disorder [None]
